FAERS Safety Report 14288812 (Version 2)
Quarter: 2018Q1

REPORT INFORMATION
  Report Type: Report from Study
  Country: None (occurrence: IL)
  Receive Date: 20171215
  Receipt Date: 20180205
  Transmission Date: 20180509
  Serious: Yes (Hospitalization)
  Sender: FDA-Public Use
  Company Number: IL-ABBVIE-17K-082-2004307-00

PATIENT
  Age: 65 Year
  Sex: Male

DRUGS (10)
  1. DUODOPA [Suspect]
     Active Substance: CARBIDOPA\LEVODOPA
     Dosage: CURRENT MORNING DOSE- 13 ML, CURRENT FIXED RATE- 2.6 ML/ HOUR, CURRENT EXTRA DOSE- 1 ML
     Route: 050
     Dates: start: 2017, end: 2017
  2. DUODOPA [Suspect]
     Active Substance: CARBIDOPA\LEVODOPA
     Dosage: CURRENT ED: 1.2 ML.
     Route: 050
     Dates: start: 2017, end: 2017
  3. DUODOPA [Suspect]
     Active Substance: CARBIDOPA\LEVODOPA
     Dosage: MORNING DOSE 13.0ML, CONTINUOUS DOSE 3.5ML/HOUR, EXTRA DOSE 1.5ML.
     Route: 050
     Dates: start: 2017, end: 20171213
  4. DUODOPA [Suspect]
     Active Substance: CARBIDOPA\LEVODOPA
     Indication: PARKINSON^S DISEASE
     Dosage: MD:13ML  CURRENT ED:1ML  CONTINUES RATE:3.2 ML/HOUR  FIXED RATE: 2.8 ML/ HR.
     Route: 050
     Dates: start: 20170529, end: 2017
  5. DUODOPA [Suspect]
     Active Substance: CARBIDOPA\LEVODOPA
     Dosage: MORNING DOSE 13.0ML, CONTINUOUS DOSE 3.5ML/HOUR, EXTRA DOSE 1.5ML.
     Route: 050
     Dates: start: 20171213
  6. DUODOPA [Suspect]
     Active Substance: CARBIDOPA\LEVODOPA
     Dosage: MORNING DOSE 13.0ML, CONTINUOUS DOSE 3.3ML/HOUR, EXTRA DOSE 1.4ML.
     Route: 050
     Dates: start: 2017, end: 2017
  7. DUODOPA [Suspect]
     Active Substance: CARBIDOPA\LEVODOPA
     Dosage: CURRENT RATE- 3.0 ML/HOUR
     Route: 050
     Dates: start: 2017, end: 2017
  8. DUODOPA [Suspect]
     Active Substance: CARBIDOPA\LEVODOPA
     Dosage: CURRENT RATE- 2.8 ML/HOUR.
     Route: 050
     Dates: start: 2017, end: 2017
  9. DUODOPA [Suspect]
     Active Substance: CARBIDOPA\LEVODOPA
     Dosage: CURRENT MORNING DOSE: 13ML., CURRENT CONTINUOUS RATE: 2.7 ML/HOUR., CURRENT ED: 1ML.
     Route: 050
     Dates: start: 20170613, end: 2017
  10. SINEMET [Concomitant]
     Active Substance: CARBIDOPA\LEVODOPA
     Indication: PRODUCT USED FOR UNKNOWN INDICATION

REACTIONS (8)
  - Gait disturbance [Not Recovered/Not Resolved]
  - Dyskinesia [Not Recovered/Not Resolved]
  - Intervertebral disc compression [Unknown]
  - On and off phenomenon [Recovered/Resolved]
  - Arthralgia [Not Recovered/Not Resolved]
  - Musculoskeletal stiffness [Unknown]
  - Orthostatic hypotension [Unknown]
  - On and off phenomenon [Not Recovered/Not Resolved]

NARRATIVE: CASE EVENT DATE: 2017
